FAERS Safety Report 25355973 (Version 1)
Quarter: 2025Q2

REPORT INFORMATION
  Report Type: Spontaneous
  Country: JP (occurrence: JP)
  Receive Date: 20250525
  Receipt Date: 20250525
  Transmission Date: 20250717
  Serious: Yes (Death, Life-Threatening, Hospitalization, Other)
  Sender: MERCK SHARP & DOHME LLC
  Company Number: JP-009507513-2287928

PATIENT
  Age: 8 Decade
  Sex: Female

DRUGS (2)
  1. NOXAFIL [Suspect]
     Active Substance: POSACONAZOLE
     Indication: Antifungal prophylaxis
     Route: 065
     Dates: start: 2022, end: 2022
  2. NOXAFIL [Suspect]
     Active Substance: POSACONAZOLE
     Indication: Antifungal prophylaxis
     Route: 065
     Dates: start: 2022, end: 2022

REACTIONS (4)
  - Acute myeloid leukaemia [Fatal]
  - Hypokalaemia [Not Recovered/Not Resolved]
  - Infection [Fatal]
  - Arrhythmia [Recovering/Resolving]

NARRATIVE: CASE EVENT DATE: 20220101
